FAERS Safety Report 8238859-2 (Version None)
Quarter: 2012Q1

REPORT INFORMATION
  Report Type: 
  Country: None (occurrence: None)
  Receive Date: 20120327
  Receipt Date: 20120323
  Transmission Date: 20120608
  Serious: Yes (Other)
  Sender: FDA-Public Use
  Company Number: US-AMGEN-USASP2011003822

PATIENT
  Age: 55 Year
  Sex: Female
  Weight: 53.968 kg

DRUGS (5)
  1. PROLIA [Suspect]
     Indication: OSTEOPOROSIS POSTMENOPAUSAL
     Dosage: 60 MG, Q6MO
     Route: 058
     Dates: start: 20101228
  2. CALCIUM CARBONATE [Concomitant]
     Dosage: UNK
  3. VITAMIN D [Concomitant]
     Dosage: UNK
  4. ADDERALL 5 [Concomitant]
     Dosage: UNK
  5. LUNESTA [Concomitant]
     Dosage: UNK

REACTIONS (4)
  - PAIN IN JAW [None]
  - RASH [None]
  - BACK PAIN [None]
  - INFLUENZA LIKE ILLNESS [None]
